FAERS Safety Report 7676364-2 (Version None)
Quarter: 2011Q3

REPORT INFORMATION
  Report Type: 
  Country: None (occurrence: None)
  Receive Date: 20110811
  Receipt Date: 20110805
  Transmission Date: 20111222
  Serious: Yes (Death)
  Sender: FDA-Public Use
  Company Number: US-PFIZER INC-2011180979

PATIENT
  Sex: Female

DRUGS (1)
  1. DILANTIN-125 [Suspect]

REACTIONS (1)
  - STEVENS-JOHNSON SYNDROME [None]
